FAERS Safety Report 4885458-6 (Version None)
Quarter: 2005Q4

REPORT INFORMATION
  Report Type: 
  Country: None (occurrence: None)
  Receive Date: 20051216
  Receipt Date: 20050712
  Transmission Date: 20060501
  Serious: Yes (Other)
  Sender: FDA-Public Use
  Company Number: 2005103292

PATIENT
  Sex: Female

DRUGS (1)
  1. ARTHROTEC [Suspect]
     Indication: OSTEOARTHRITIS

REACTIONS (1)
  - RENAL FAILURE CHRONIC [None]
